FAERS Safety Report 8260229-1 (Version None)
Quarter: 2012Q2

REPORT INFORMATION
  Report Type: 
  Country: None (occurrence: None)
  Receive Date: 20120404
  Receipt Date: 20120329
  Transmission Date: 20120825
  Serious: No
  Sender: FDA-Public Use
  Company Number: US-BAYER-2012-032838

PATIENT
  Age: 45 Year
  Sex: Male
  Weight: 104 kg

DRUGS (1)
  1. ALEVE (CAPLET) [Suspect]
     Indication: HEADACHE
     Dosage: UNK
     Dates: start: 20120325, end: 20120328

REACTIONS (1)
  - PARAESTHESIA [None]
